FAERS Safety Report 10403058 (Version 3)
Quarter: 2016Q2

REPORT INFORMATION
  Report Type: Spontaneous
  Country: US (occurrence: US)
  Receive Date: 20130815
  Receipt Date: 20160412
  Transmission Date: 20160815
  Serious: Yes (Hospitalization, Other)
  Sender: FDA-Public Use
  Company Number: ADR-2013-00939

PATIENT
  Age: 26 Year
  Sex: Male

DRUGS (1)
  1. LIORESAL [Suspect]
     Active Substance: BACLOFEN
     Dosage: 50 MCG/DAY
     Route: 037

REACTIONS (6)
  - Klebsiella bacteraemia [Unknown]
  - Spinal cord infection [Unknown]
  - Infection [Unknown]
  - CSF culture positive [Unknown]
  - Pyrexia [Unknown]
  - Meningitis bacterial [Unknown]

NARRATIVE: CASE EVENT DATE: 20130530
